FAERS Safety Report 6715482-X (Version None)
Quarter: 2010Q2

REPORT INFORMATION
  Report Type: 
  Country: None (occurrence: None)
  Receive Date: 20100507
  Receipt Date: 20100504
  Transmission Date: 20101027
  Serious: Yes (Death, Hospitalization)
  Sender: FDA-Public Use
  Company Number: DE-ROCHE-573922

PATIENT
  Age: 85 Year
  Sex: Female

DRUGS (4)
  1. CAPECITABINE [Suspect]
     Route: 048
     Dates: start: 20080516, end: 20080620
  2. CAPECITABINE [Suspect]
     Dosage: END OF TREATMENT PHASE: 22 OCTOBER 2008
     Route: 048
     Dates: end: 20081017
  3. ZOMETA [Concomitant]
     Dates: start: 20080201
  4. CAELYX [Concomitant]
     Dates: start: 20081119

REACTIONS (2)
  - DIARRHOEA [None]
  - MALIGNANT NEOPLASM PROGRESSION [None]
